FAERS Safety Report 6802776-2 (Version None)
Quarter: 2010Q2

REPORT INFORMATION
  Report Type: 
  Country: None (occurrence: None)
  Receive Date: 20100628
  Receipt Date: 20100615
  Transmission Date: 20101027
  Serious: Yes (Death)
  Sender: FDA-Public Use
  Company Number: US-ELI_LILLY_AND_COMPANY-US201006004063

PATIENT
  Sex: Female

DRUGS (11)
  1. FORTEO [Suspect]
  2. SOMA [Concomitant]
  3. OXYCODONE HCL [Concomitant]
  4. TYLENOL W/ CODEINE NO. 3 [Concomitant]
  5. DIPHENHYDRAMINE [Concomitant]
  6. WARFARIN [Concomitant]
  7. AMLODIPINE [Concomitant]
  8. LORAZEPAM [Concomitant]
  9. SERTRALINE HCL [Concomitant]
  10. PRAMIPEXOLE [Concomitant]
  11. CALCIUM CARBONATE [Concomitant]

REACTIONS (2)
  - DEATH [None]
  - OEDEMA PERIPHERAL [None]
